FAERS Safety Report 6618991-7 (Version None)
Quarter: 2010Q1

REPORT INFORMATION
  Report Type: 
  Country: None (occurrence: None)
  Receive Date: 20100308
  Receipt Date: 20100301
  Transmission Date: 20100710
  Serious: Yes (Other)
  Sender: FDA-Public Use
  Company Number: PHEH2010US01245

PATIENT
  Sex: Female

DRUGS (1)
  1. FEMARA [Suspect]
     Indication: BREAST CANCER STAGE IV
     Dosage: 2.5 MG, DAILY
     Route: 048
     Dates: start: 20090829, end: 20100113

REACTIONS (3)
  - DRUG INEFFECTIVE [None]
  - MALIGNANT NEOPLASM PROGRESSION [None]
  - PLEURAL DISORDER [None]
